FAERS Safety Report 9937620 (Version 1)
Quarter: 2014Q1

REPORT INFORMATION
  Report Type: Spontaneous
  Country: US (occurrence: US)
  Receive Date: 20140303
  Receipt Date: 20140303
  Transmission Date: 20141002
  Serious: Yes (Other)
  Sender: FDA-Public Use
  Company Number: US-ROCHE-1353074

PATIENT
  Age: 31 Year
  Sex: Female

DRUGS (16)
  1. XOLAIR [Suspect]
     Indication: URTICARIA CHRONIC
     Route: 058
     Dates: start: 20140127
  2. XOLAIR [Suspect]
     Indication: ASTHMA
  3. BACTRIM [Suspect]
     Indication: PRODUCT USED FOR UNKNOWN INDICATION
     Route: 065
  4. DULERA [Concomitant]
  5. VICODIN [Concomitant]
  6. ZANAFLEX [Concomitant]
  7. COMBIVENT [Concomitant]
  8. MORPHINE [Concomitant]
  9. ATIVAN [Concomitant]
  10. ZANTAC [Concomitant]
  11. HYDROXYZINE [Concomitant]
  12. BENADRYL (CANADA) [Concomitant]
  13. EPIPEN [Concomitant]
  14. ALLEGRA [Concomitant]
     Route: 065
  15. VENTOLIN [Concomitant]
  16. ZOFRAN [Concomitant]

REACTIONS (7)
  - Swelling face [Recovered/Resolved]
  - Lip swelling [Recovered/Resolved]
  - Heart rate increased [Recovered/Resolved]
  - Muscle spasms [Unknown]
  - Pain in extremity [Unknown]
  - Physical disability [Unknown]
  - Hypersensitivity [Unknown]
